FAERS Safety Report 9464427 (Version 2)
Quarter: 2013Q3

REPORT INFORMATION
  Report Type: Report from Study
  Country: CA (occurrence: CA)
  Receive Date: 20130819
  Receipt Date: 20130819
  Transmission Date: 20140515
  Serious: Yes (Other)
  Sender: FDA-Public Use
  Company Number: CA-JNJFOC-20130615294

PATIENT
  Age: 69 Year
  Sex: Female
  Weight: 87 kg

DRUGS (9)
  1. REMICADE [Suspect]
     Indication: RHEUMATOID ARTHRITIS
     Route: 042
     Dates: start: 20080721
  2. IMOVANE [Concomitant]
     Dosage: PRN
     Route: 048
  3. SYNTHROID [Concomitant]
     Route: 048
  4. CRESTOR [Concomitant]
     Route: 048
  5. NAPROSYN [Concomitant]
     Route: 048
  6. TYLENOL 3 [Concomitant]
     Dosage: PRN
     Route: 048
  7. PREMARIN [Concomitant]
     Dosage: PRN
     Route: 065
  8. VITAMIN D [Concomitant]
     Dosage: PRN
     Route: 065
  9. RESTASIS [Concomitant]
     Dosage: PRN
     Route: 065

REACTIONS (1)
  - Ankle operation [Recovering/Resolving]
